FAERS Safety Report 4595299-5 (Version None)
Quarter: 2005Q1

REPORT INFORMATION
  Report Type: 
  Country: None (occurrence: None)
  Receive Date: 20050223
  Receipt Date: 20050214
  Transmission Date: 20050727
  Serious: Yes (Other)
  Sender: FDA-Public Use
  Company Number: 2005029931

PATIENT
  Age: 44 Year
  Sex: Female

DRUGS (2)
  1. DEPO-PROVERA [Suspect]
     Indication: ILL-DEFINED DISORDER
     Dosage: 150 MG (150 MG, FIRST INJECTION), INTRAMUSCULAR
     Route: 030
     Dates: start: 19961101, end: 19961101
  2. DEPO-PROVERA [Suspect]
     Dosage: 150 MG (150 MG, MOST RECENT INJECTION), INTRAMUSCULAR
     Route: 030
     Dates: start: 20050108, end: 20050108

REACTIONS (3)
  - AMENORRHOEA [None]
  - MYALGIA [None]
  - RETINAL DETACHMENT [None]
